FAERS Safety Report 12775966 (Version 1)
Quarter: 2016Q3

REPORT INFORMATION
  Report Type: Spontaneous
  Country: US (occurrence: US)
  Receive Date: 20160923
  Receipt Date: 20160923
  Transmission Date: 20161109
  Serious: No
  Sender: FDA-Public Use
  Company Number: US-BAYER-2016-179049

PATIENT
  Age: 29 Year
  Sex: Female

DRUGS (4)
  1. PYRAZINAMIDE. [Concomitant]
     Active Substance: PYRAZINAMIDE
     Dosage: 1500 MG, QD
  2. ETHAMBUTOL [Concomitant]
     Active Substance: ETHAMBUTOL HYDROCHLORIDE
     Dosage: 800 MG, QD
  3. ISONIAZID. [Concomitant]
     Active Substance: ISONIAZID
     Dosage: 300 MG, QD
  4. MOXIFLOXACIN ORAL [Suspect]
     Active Substance: MOXIFLOXACIN
     Indication: TUBERCULOSIS
     Dosage: 400 MG, QD

REACTIONS (1)
  - Off label use [Recovered/Resolved]
